FAERS Safety Report 4449730-6 (Version None)
Quarter: 2004Q3

REPORT INFORMATION
  Report Type: 
  Country: None (occurrence: None)
  Receive Date: 20040913
  Receipt Date: 20040907
  Transmission Date: 20050211
  Serious: Yes (Other)
  Sender: FDA-Public Use
  Company Number: 2004-09-0403

PATIENT
  Age: 41 Year
  Sex: Male

DRUGS (2)
  1. PEG-INTRON [Suspect]
     Indication: HEPATITIS C
     Dates: start: 20030411, end: 20040101
  2. REBETOL [Suspect]
     Indication: HEPATITIS C
     Dosage: ORAL
     Route: 048
     Dates: start: 20030411, end: 20040101

REACTIONS (4)
  - BLADDER DIVERTICULUM [None]
  - RENAL DISORDER [None]
  - URINARY RETENTION [None]
  - URINARY TRACT INFECTION [None]
